FAERS Safety Report 6895971-8 (Version None)
Quarter: 2010Q3

REPORT INFORMATION
  Report Type: 
  Country: None (occurrence: None)
  Receive Date: 20100802
  Receipt Date: 20100709
  Transmission Date: 20110219
  Serious: Yes (Other)
  Sender: FDA-Public Use
  Company Number: PHEH2006US10419

PATIENT
  Sex: Female
  Weight: 55.328 kg

DRUGS (10)
  1. AREDIA [Suspect]
     Indication: OSTEOPOROSIS
     Dosage: UNK, Q 3 MONTHS
     Route: 042
     Dates: start: 20020101, end: 20051007
  2. ZOMETA [Suspect]
  3. CELEBREX [Concomitant]
  4. PRILOSEC [Concomitant]
  5. PREVACID [Concomitant]
  6. HORMONES NOS [Concomitant]
  7. CALCIUM [Concomitant]
  8. PROTONIX [Concomitant]
     Indication: GASTROINTESTINAL DISORDER
     Dosage: UNK, UNK
  9. VITAMIN TAB [Concomitant]
     Dosage: UNK, UNK
  10. MINERALS NOS [Concomitant]
     Dosage: UNK, UNK

REACTIONS (21)
  - ATROPHY [None]
  - BONE GRAFT [None]
  - DENTAL OPERATION [None]
  - ENDODONTIC PROCEDURE [None]
  - ERYTHEMA [None]
  - GINGIVAL BLEEDING [None]
  - GINGIVAL ERYTHEMA [None]
  - GINGIVAL PAIN [None]
  - IRRITABLE BOWEL SYNDROME [None]
  - MELANOCYTIC NAEVUS [None]
  - MOLE EXCISION [None]
  - NASAL SEPTAL OPERATION [None]
  - OEDEMA PERIPHERAL [None]
  - OSTEONECROSIS OF JAW [None]
  - SURGERY [None]
  - SYNOVIAL CYST [None]
  - TENDERNESS [None]
  - TOOTH DISORDER [None]
  - TOOTH INFECTION [None]
  - TUMOUR EXCISION [None]
  - URETHRAL DISORDER [None]
